FAERS Safety Report 23841194 (Version 2)
Quarter: 2024Q2

REPORT INFORMATION
  Report Type: Report from Study
  Country: US (occurrence: US)
  Receive Date: 20240510
  Receipt Date: 20240614
  Transmission Date: 20240716
  Serious: Yes (Other)
  Sender: FDA-Public Use
  Company Number: US-DECIPHERA PHARMACEUTICALS LLC-2024US000412

PATIENT
  Age: 65 Year
  Sex: Male

DRUGS (1)
  1. QINLOCK [Suspect]
     Active Substance: RIPRETINIB
     Indication: Gastrointestinal stromal tumour
     Dosage: 150 MILLIGRAM, QD
     Dates: start: 202308

REACTIONS (6)
  - Blood iron decreased [Unknown]
  - Vitamin B12 decreased [Unknown]
  - Heart rate increased [Unknown]
  - Asthenia [Unknown]
  - Arthralgia [Unknown]
  - Muscle spasms [Unknown]

NARRATIVE: CASE EVENT DATE: 20240502
